FAERS Safety Report 19157446 (Version 1)
Quarter: 2021Q2

REPORT INFORMATION
  Report Type: Spontaneous
  Country: US (occurrence: US)
  Receive Date: 20210419
  Receipt Date: 20210419
  Transmission Date: 20210717
  Serious: No
  Sender: FDA-Public Use
  Company Number: None

PATIENT
  Age: 78 Year
  Sex: Male
  Weight: 81.2 kg

DRUGS (19)
  1. ACETAMINOPHEN?HYDROCODONE [Concomitant]
     Active Substance: ACETAMINOPHEN\HYDROCODONE
  2. IBUPROFEN. [Concomitant]
     Active Substance: IBUPROFEN
  3. ABIRATERONE. [Suspect]
     Active Substance: ABIRATERONE ACETATE
     Indication: PROSTATE CANCER
     Route: 048
     Dates: start: 20201102, end: 20210419
  4. CALTRATE [Concomitant]
     Active Substance: CALCIUM CARBONATE
  5. MULTIVITAMIN + MINERAL [Concomitant]
     Active Substance: MINERALS\VITAMINS
  6. LEUPROLIDE [Concomitant]
     Active Substance: LEUPROLIDE
  7. ONDANSETRON HCL [Concomitant]
     Active Substance: ONDANSETRON HYDROCHLORIDE
  8. DOCUSATE SODIUM. [Concomitant]
     Active Substance: DOCUSATE SODIUM
  9. MELATONIN [Concomitant]
     Active Substance: MELATONIN
  10. OMEPRAZOLE. [Concomitant]
     Active Substance: OMEPRAZOLE
  11. PREGABALIN. [Concomitant]
     Active Substance: PREGABALIN
  12. DEXAMETHASONE. [Concomitant]
     Active Substance: DEXAMETHASONE
  13. LEVOTHYROXINE SODIUM. [Concomitant]
     Active Substance: LEVOTHYROXINE SODIUM
  14. PRESERVISION AREDS 2 [Concomitant]
     Active Substance: MINERALS\VITAMINS
  15. SODIUM CHLORIDE NASAL [Concomitant]
  16. LISINOPRIL. [Concomitant]
     Active Substance: LISINOPRIL
  17. ZOLEDRONIC ACID [Concomitant]
     Active Substance: ZOLEDRONIC ACID
  18. PREDNISONE. [Concomitant]
     Active Substance: PREDNISONE
  19. ROSUVASTATIN CALCIUM. [Concomitant]
     Active Substance: ROSUVASTATIN CALCIUM

REACTIONS (1)
  - Disease progression [None]

NARRATIVE: CASE EVENT DATE: 20210419
